FAERS Safety Report 4672520-6 (Version None)
Quarter: 2005Q2

REPORT INFORMATION
  Report Type: 
  Country: None (occurrence: None)
  Receive Date: 20050524
  Receipt Date: 20050225
  Transmission Date: 20051028
  Serious: Yes (Hospitalization)
  Sender: FDA-Public Use
  Company Number: SE-BRISTOL-MYERS SQUIBB COMPANY-12877668

PATIENT
  Age: 40 Year
  Sex: Male

DRUGS (8)
  1. ABILIFY [Suspect]
     Indication: PSYCHOTIC DISORDER
     Route: 048
     Dates: start: 20050122, end: 20050206
  2. ABILIFY [Suspect]
     Indication: SCHIZOPHRENIA
     Route: 048
     Dates: start: 20050122, end: 20050206
  3. SOBRIL [Concomitant]
     Indication: INSOMNIA
  4. ACETAMINOPHEN [Concomitant]
     Route: 048
  5. PROPAVAN [Concomitant]
     Route: 048
  6. SOMADRIL [Concomitant]
     Route: 048
  7. LANSOPRAZOLE [Concomitant]
     Route: 048
  8. OXASCAND [Concomitant]
     Route: 048

REACTIONS (9)
  - DIFFICULTY IN WALKING [None]
  - HALLUCINATION, AUDITORY [None]
  - INSOMNIA [None]
  - MUSCLE SPASMS [None]
  - NEUROLEPTIC MALIGNANT SYNDROME [None]
  - RENAL FAILURE [None]
  - TACHYCARDIA [None]
  - TREATMENT NONCOMPLIANCE [None]
  - WHITE BLOOD CELL COUNT INCREASED [None]
